FAERS Safety Report 18079401 (Version 1)
Quarter: 2020Q3

REPORT INFORMATION
  Report Type: Spontaneous
  Country: US (occurrence: US)
  Receive Date: 20200727
  Receipt Date: 20200727
  Transmission Date: 20201103
  Serious: Yes (Death)
  Sender: FDA-Public Use
  Company Number: None

PATIENT
  Age: 82 Year
  Sex: Female
  Weight: 89.4 kg

DRUGS (27)
  1. ATORVASTATIN [Concomitant]
     Active Substance: ATORVASTATIN
  2. DEXAMETHASONE. [Concomitant]
     Active Substance: DEXAMETHASONE
  3. GABAPENTIN. [Concomitant]
     Active Substance: GABAPENTIN
  4. LORAZEPAM. [Concomitant]
     Active Substance: LORAZEPAM
  5. CHLORHEXIDINE [Concomitant]
     Active Substance: CHLORHEXIDINE
  6. CHOLECCIFEROL (VITAMIN D3) [Concomitant]
  7. CLONIDINE. [Concomitant]
     Active Substance: CLONIDINE
  8. ONDANSETRON [Concomitant]
     Active Substance: ONDANSETRON
  9. ZINC SULFATE. [Concomitant]
     Active Substance: ZINC SULFATE
  10. ALBUTEROL. [Concomitant]
     Active Substance: ALBUTEROL
  11. FAMOTIDINE. [Concomitant]
     Active Substance: FAMOTIDINE
  12. PATIROMER CALCIUM SORBITEX [Concomitant]
  13. ASCORBIC ACID (VITAMIN C) [Concomitant]
     Active Substance: ASCORBIC ACID
  14. DIPHENHYDRAMINE. [Concomitant]
     Active Substance: DIPHENHYDRAMINE
  15. SODIUM BICARBONATE IN DEXTROSE 5% [Concomitant]
  16. ACETAMINOPHEN. [Concomitant]
     Active Substance: ACETAMINOPHEN
  17. AMLODIPINE [Concomitant]
     Active Substance: AMLODIPINE BESYLATE
  18. ENOXAPARIN [Concomitant]
     Active Substance: ENOXAPARIN
  19. SUCRALFATE. [Concomitant]
     Active Substance: SUCRALFATE
  20. ALPRAZOLAM. [Concomitant]
     Active Substance: ALPRAZOLAM
  21. LEVOFLOXACIN. [Concomitant]
     Active Substance: LEVOFLOXACIN
  22. SODIUM BICARBONATE. [Concomitant]
     Active Substance: SODIUM BICARBONATE
  23. TIMOLOL MALEATE 0.5% [Concomitant]
     Active Substance: TIMOLOL MALEATE
  24. REMDESIVIR SOLUTION 100MG VIAL [Suspect]
     Active Substance: REMDESIVIR
     Indication: COVID-19 PNEUMONIA
     Route: 042
     Dates: start: 20200710, end: 20200710
  25. REMDESIVIR SOLUTION 100MG VIAL [Suspect]
     Active Substance: REMDESIVIR
     Indication: COVID-19 PNEUMONIA
     Route: 042
     Dates: start: 20200711, end: 20200714
  26. HYDRALAZINE [Concomitant]
     Active Substance: HYDRALAZINE HYDROCHLORIDE
  27. MUPIROCIN. [Concomitant]
     Active Substance: MUPIROCIN

REACTIONS (3)
  - Bradycardia [None]
  - Oxygen saturation decreased [None]
  - Condition aggravated [None]

NARRATIVE: CASE EVENT DATE: 20200721
